FAERS Safety Report 6369215-X (Version None)
Quarter: 2009Q3

REPORT INFORMATION
  Report Type: 
  Country: None (occurrence: None)
  Receive Date: 20090922
  Receipt Date: 20090917
  Transmission Date: 20100115
  Serious: Yes (Death)
  Sender: FDA-Public Use
  Company Number: GB-BRISTOL-MYERS SQUIBB COMPANY-14589055

PATIENT
  Age: 19 Year
  Sex: Female

DRUGS (9)
  1. FUNGIZONE [Suspect]
     Indication: ANTIFUNGAL PROPHYLAXIS
     Dosage: DUR:91DAY
  2. SPORANOX [Suspect]
     Indication: ANTIFUNGAL PROPHYLAXIS
  3. AZATHIOPRINE [Suspect]
     Indication: IMMUNOSUPPRESSION
     Route: 048
  4. NEORAL [Suspect]
     Indication: IMMUNOSUPPRESSION
     Route: 048
  5. METHYLPREDNISOLONE [Suspect]
     Indication: IMMUNOSUPPRESSION
     Route: 042
  6. PREDNISONE [Suspect]
     Indication: IMMUNOSUPPRESSION
  7. CEFTAZIDIME [Concomitant]
     Dosage: 1 WEEK 3 DAYS.
     Route: 042
  8. GENTAMICIN [Concomitant]
     Dosage: 1 WEEK 3 DAYS.
     Route: 042
  9. TARGOCID [Concomitant]
     Dosage: 1 WEEK 3 DAYS.
     Route: 042

REACTIONS (1)
  - FUNGAL ENDOCARDITIS [None]
